FAERS Safety Report 8202760-0 (Version None)
Quarter: 2012Q1

REPORT INFORMATION
  Report Type: 
  Country: None (occurrence: None)
  Receive Date: 20120312
  Receipt Date: 20120312
  Transmission Date: 20120608
  Serious: Yes (Other)
  Sender: FDA-Public Use
  Company Number: None

PATIENT
  Sex: Male

DRUGS (2)
  1. CLINDAMYCIN [Suspect]
     Indication: TOOTH INFECTION
     Route: 048
     Dates: start: 20120306, end: 20120308
  2. CLINDAMYCIN [Concomitant]
     Dosage: 1 CAPSULE
     Route: 048
     Dates: start: 20120306, end: 20120308

REACTIONS (2)
  - OESOPHAGEAL PAIN [None]
  - CHEST PAIN [None]
